FAERS Safety Report 7635462-X (Version None)
Quarter: 2011Q3

REPORT INFORMATION
  Report Type: 
  Country: None (occurrence: None)
  Receive Date: 20110726
  Receipt Date: 20110726
  Transmission Date: 20111222
  Serious: Yes (Other)
  Sender: FDA-Public Use
  Company Number: None

PATIENT
  Age: 35 Year
  Sex: Female
  Weight: 49.895 kg

DRUGS (1)
  1. METHYLPHENIDATE [Suspect]
     Indication: ATTENTION DEFICIT/HYPERACTIVITY DISORDER
     Dosage: 1
     Route: 048
     Dates: start: 20110605, end: 20110707

REACTIONS (4)
  - PRODUCT SUBSTITUTION ISSUE [None]
  - TREMOR [None]
  - MOBILITY DECREASED [None]
  - IMPAIRED DRIVING ABILITY [None]
